FAERS Safety Report 19020074 (Version 1)
Quarter: 2021Q1

REPORT INFORMATION
  Report Type: Spontaneous
  Country: US (occurrence: US)
  Receive Date: 20210317
  Receipt Date: 20210317
  Transmission Date: 20210420
  Serious: Yes (Other)
  Sender: FDA-Public Use
  Company Number: None

PATIENT
  Age: 58 Year
  Sex: Female
  Weight: 57.15 kg

DRUGS (1)
  1. CYANOCOBALAMIN (B?12) [Suspect]
     Active Substance: CYANOCOBALAMIN
     Indication: VITAMIN B12 DEFICIENCY
     Dosage: ?          OTHER FREQUENCY:1 EVERY 3 MONTHS;?
     Route: 030
     Dates: start: 20210316, end: 20210317

REACTIONS (3)
  - Pain in extremity [None]
  - Neuralgia [None]
  - Headache [None]

NARRATIVE: CASE EVENT DATE: 20210316
